FAERS Safety Report 6313884-7 (Version None)
Quarter: 2009Q3

REPORT INFORMATION
  Report Type: 
  Country: None (occurrence: None)
  Receive Date: 20090814
  Receipt Date: 20090806
  Transmission Date: 20100115
  Serious: Yes (Hospitalization, Disabling)
  Sender: FDA-Public Use
  Company Number: SPV1-2009-00526

PATIENT
  Age: 64 Year
  Sex: Male

DRUGS (6)
  1. FOSRENOL [Suspect]
     Indication: HYPERPHOSPHATAEMIA
     Dosage: ORAL
     Route: 048
     Dates: start: 20090319, end: 20090320
  2. RENAGEL [Concomitant]
  3. AMLODIPINE BESYLATE [Concomitant]
  4. ZYLORIC	/00003301/ (ALLOPURINOL) [Concomitant]
  5. PROTECADIN (LAFUTIDINE) [Concomitant]
  6. NICARDIPINE HYDROCHLORIDE [Concomitant]

REACTIONS (2)
  - ILEUS [None]
  - NAUSEA [None]
